FAERS Safety Report 9319993 (Version 2)
Quarter: 2013Q2

REPORT INFORMATION
  Report Type: Spontaneous
  Country: IT (occurrence: IT)
  Receive Date: 20130530
  Receipt Date: 20130603
  Transmission Date: 20140414
  Serious: Yes (Hospitalization)
  Sender: FDA-Public Use
  Company Number: IT-JNJFOC-20130513338

PATIENT
  Age: 55 Year
  Sex: Female

DRUGS (5)
  1. SERENASE [Suspect]
     Indication: DEPRESSION
     Route: 048
     Dates: start: 20130411, end: 20130412
  2. TAVOR [Suspect]
     Indication: DEPRESSION
     Route: 048
     Dates: start: 20060101, end: 20130412
  3. REMERON [Suspect]
     Indication: DEPRESSION
     Route: 048
     Dates: start: 20060101, end: 20130412
  4. ACETYLSALICYLIC ACID [Concomitant]
     Indication: PRODUCT USED FOR UNKNOWN INDICATION
     Route: 048
     Dates: start: 20060101, end: 20130415
  5. RAMIPRIL [Concomitant]
     Indication: PRODUCT USED FOR UNKNOWN INDICATION
     Route: 048
     Dates: start: 20000101, end: 20130415

REACTIONS (2)
  - Paraesthesia [Recovering/Resolving]
  - Speech disorder [Recovering/Resolving]
